FAERS Safety Report 25666322 (Version 2)
Quarter: 2025Q3

REPORT INFORMATION
  Report Type: Report from Study
  Country: US (occurrence: US)
  Receive Date: 20250811
  Receipt Date: 20250820
  Transmission Date: 20251020
  Serious: Yes (Hospitalization, Other)
  Sender: MYLAN
  Company Number: US-MYLANLABS-2025M1067054

PATIENT
  Sex: Female

DRUGS (28)
  1. PREDNISONE [Suspect]
     Active Substance: PREDNISONE
     Indication: Chronic obstructive pulmonary disease
  2. PREDNISONE [Suspect]
     Active Substance: PREDNISONE
     Route: 065
  3. PREDNISONE [Suspect]
     Active Substance: PREDNISONE
     Route: 065
  4. PREDNISONE [Suspect]
     Active Substance: PREDNISONE
  5. OHTUVAYRE [Suspect]
     Active Substance: ENSIFENTRINE
     Indication: Chronic obstructive pulmonary disease
     Dosage: 3 MILLIGRAM, BID (TWO TIMES A DAY)
  6. OHTUVAYRE [Suspect]
     Active Substance: ENSIFENTRINE
     Dosage: 3 MILLIGRAM, BID (TWO TIMES A DAY)
     Route: 055
  7. OHTUVAYRE [Suspect]
     Active Substance: ENSIFENTRINE
     Dosage: 3 MILLIGRAM, BID (TWO TIMES A DAY)
     Route: 055
  8. OHTUVAYRE [Suspect]
     Active Substance: ENSIFENTRINE
     Dosage: 3 MILLIGRAM, BID (TWO TIMES A DAY)
  9. DOXYCYCLINE [Suspect]
     Active Substance: DOXYCYCLINE
     Indication: Chronic obstructive pulmonary disease
  10. DOXYCYCLINE [Suspect]
     Active Substance: DOXYCYCLINE
     Route: 065
  11. DOXYCYCLINE [Suspect]
     Active Substance: DOXYCYCLINE
     Route: 065
  12. DOXYCYCLINE [Suspect]
     Active Substance: DOXYCYCLINE
  13. AMLODIPINE BESYLATE [Concomitant]
     Active Substance: AMLODIPINE BESYLATE
  14. AMLODIPINE BESYLATE [Concomitant]
     Active Substance: AMLODIPINE BESYLATE
     Route: 065
  15. AMLODIPINE BESYLATE [Concomitant]
     Active Substance: AMLODIPINE BESYLATE
     Route: 065
  16. AMLODIPINE BESYLATE [Concomitant]
     Active Substance: AMLODIPINE BESYLATE
  17. ATORVASTATIN [Concomitant]
     Active Substance: ATORVASTATIN
  18. ATORVASTATIN [Concomitant]
     Active Substance: ATORVASTATIN
     Route: 065
  19. ATORVASTATIN [Concomitant]
     Active Substance: ATORVASTATIN
     Route: 065
  20. ATORVASTATIN [Concomitant]
     Active Substance: ATORVASTATIN
  21. LEVALBUTEROL [Concomitant]
     Active Substance: LEVALBUTEROL
  22. LEVALBUTEROL [Concomitant]
     Active Substance: LEVALBUTEROL
     Route: 065
  23. LEVALBUTEROL [Concomitant]
     Active Substance: LEVALBUTEROL
     Route: 065
  24. LEVALBUTEROL [Concomitant]
     Active Substance: LEVALBUTEROL
  25. MESTINON [Concomitant]
     Active Substance: PYRIDOSTIGMINE BROMIDE
  26. MESTINON [Concomitant]
     Active Substance: PYRIDOSTIGMINE BROMIDE
     Route: 065
  27. MESTINON [Concomitant]
     Active Substance: PYRIDOSTIGMINE BROMIDE
     Route: 065
  28. MESTINON [Concomitant]
     Active Substance: PYRIDOSTIGMINE BROMIDE

REACTIONS (6)
  - Chronic obstructive pulmonary disease [Not Recovered/Not Resolved]
  - Pneumonia [Not Recovered/Not Resolved]
  - Oral candidiasis [Not Recovered/Not Resolved]
  - Dyspnoea [Not Recovered/Not Resolved]
  - Eyelid ptosis [Not Recovered/Not Resolved]
  - Off label use [Unknown]
